FAERS Safety Report 11045872 (Version 2)
Quarter: 2015Q2

REPORT INFORMATION
  Report Type: Spontaneous
  Country: RU (occurrence: RU)
  Receive Date: 20150417
  Receipt Date: 20150506
  Transmission Date: 20150821
  Serious: Yes (Disabling, Other)
  Sender: FDA-Public Use
  Company Number: RU-BIOMARINAP-RU-2015-106099

PATIENT
  Sex: Male
  Weight: 23 kg

DRUGS (4)
  1. ALDURAZYME [Suspect]
     Active Substance: LARONIDASE
     Indication: MUCOPOLYSACCHARIDOSIS I
     Dosage: 100 IU/KG, UNK
     Route: 041
     Dates: start: 201210
  2. ACTOVEGIN [Suspect]
     Active Substance: UNSPECIFIED INGREDIENT
     Indication: MUCOPOLYSACCHARIDOSIS I
     Dosage: UNK
     Route: 065
     Dates: start: 201210
  3. ACTOVEGIN [Suspect]
     Active Substance: UNSPECIFIED INGREDIENT
     Dosage: UNK
  4. CORTEXIN [Suspect]
     Active Substance: SUS SCROFA CEREBRAL CORTEX
     Indication: PRODUCT USED FOR UNKNOWN INDICATION
     Route: 065

REACTIONS (10)
  - Corneal disorder [Unknown]
  - Visual acuity reduced [Not Recovered/Not Resolved]
  - Speech disorder developmental [Unknown]
  - Vomiting [Unknown]
  - Astigmatism [Unknown]
  - Cognitive disorder [Unknown]
  - Blindness [Not Recovered/Not Resolved]
  - Optic atrophy [Not Recovered/Not Resolved]
  - Gait disturbance [Unknown]
  - Headache [Unknown]
